FAERS Safety Report 25920669 (Version 3)
Quarter: 2025Q4

REPORT INFORMATION
  Report Type: Spontaneous
  Country: EU (occurrence: EU)
  Receive Date: 20251014
  Receipt Date: 20251217
  Transmission Date: 20260118
  Serious: Yes (Other)
  Sender: PFIZER
  Company Number: None

PATIENT
  Age: 48 Year
  Sex: Male
  Weight: 78.5 kg

DRUGS (64)
  1. LORAZEPAM [Suspect]
     Active Substance: LORAZEPAM
     Dosage: 2 MG, DAILY
     Route: 065
     Dates: start: 20250516, end: 20250609
  2. LORAZEPAM [Suspect]
     Active Substance: LORAZEPAM
     Dosage: 1.75 MG, DAILY
     Route: 065
     Dates: start: 20250610, end: 20250611
  3. LORAZEPAM [Suspect]
     Active Substance: LORAZEPAM
     Dosage: 1.5 MG, DAILY
     Route: 065
     Dates: start: 20250612, end: 20250614
  4. LORAZEPAM [Suspect]
     Active Substance: LORAZEPAM
     Dosage: 1.25 MG, DAILY
     Route: 065
     Dates: start: 20250615, end: 20250618
  5. LORAZEPAM [Suspect]
     Active Substance: LORAZEPAM
     Dosage: 1 MG, DAILY
     Route: 065
     Dates: start: 20250619, end: 20250715
  6. ARIPIPRAZOLE [Suspect]
     Active Substance: ARIPIPRAZOLE
     Dosage: 2.5 MG, DAILY
     Route: 065
     Dates: start: 20250507, end: 20250516
  7. ARIPIPRAZOLE [Suspect]
     Active Substance: ARIPIPRAZOLE
     Dosage: 5 MG, DAILY
     Route: 065
     Dates: start: 20250517, end: 20250905
  8. GINKGO [Suspect]
     Active Substance: GINKGO
     Dosage: 240 MG, DAILY
     Route: 065
     Dates: start: 20250507, end: 20250618
  9. MELATONIN [Suspect]
     Active Substance: MELATONIN
     Dosage: 4 MG, DAILY
     Route: 065
     Dates: start: 20250507, end: 20250729
  10. MELATONIN [Suspect]
     Active Substance: MELATONIN
     Dosage: 2 MG, DAILY
     Route: 065
     Dates: start: 20250730, end: 20250905
  11. IVABRADINE [Suspect]
     Active Substance: IVABRADINE
     Dosage: 2.5 MG, DAILY
     Route: 065
     Dates: start: 20250507, end: 20250519
  12. IVABRADINE [Suspect]
     Active Substance: IVABRADINE
     Dosage: 5 MG, DAILY
     Route: 065
     Dates: start: 20250520, end: 20250715
  13. KETAMINE HYDROCHLORIDE [Suspect]
     Active Substance: KETAMINE HYDROCHLORIDE
     Dosage: 12.5 MG, DAILY
     Route: 065
     Dates: start: 20250513, end: 20250513
  14. KETAMINE HYDROCHLORIDE [Suspect]
     Active Substance: KETAMINE HYDROCHLORIDE
     Dosage: 12.5 MG, DAILY
     Route: 065
     Dates: start: 20250515, end: 20250515
  15. KETAMINE HYDROCHLORIDE [Suspect]
     Active Substance: KETAMINE HYDROCHLORIDE
     Dosage: 12.5 MG, DAILY
     Route: 065
     Dates: start: 20250520, end: 20250520
  16. KETAMINE HYDROCHLORIDE [Suspect]
     Active Substance: KETAMINE HYDROCHLORIDE
     Dosage: 25 MG, DAILY
     Route: 065
     Dates: start: 20250522, end: 20250522
  17. KETAMINE HYDROCHLORIDE [Suspect]
     Active Substance: KETAMINE HYDROCHLORIDE
     Dosage: 25 MG, DAILY
     Route: 065
     Dates: start: 20250527, end: 20250527
  18. KETAMINE HYDROCHLORIDE [Suspect]
     Active Substance: KETAMINE HYDROCHLORIDE
     Dosage: 25 MG, DAILY
     Route: 065
     Dates: start: 20250603, end: 20250603
  19. KETAMINE HYDROCHLORIDE [Suspect]
     Active Substance: KETAMINE HYDROCHLORIDE
     Dosage: 37.5 MG, DAILY
     Route: 065
     Dates: start: 20250605, end: 20250605
  20. KETAMINE HYDROCHLORIDE [Suspect]
     Active Substance: KETAMINE HYDROCHLORIDE
     Dosage: 37.5 MG, DAILY
     Route: 065
     Dates: start: 20250610, end: 20250610
  21. KETAMINE HYDROCHLORIDE [Suspect]
     Active Substance: KETAMINE HYDROCHLORIDE
     Dosage: 37.5 MG, DAILY
     Route: 065
     Dates: start: 20250612, end: 20250612
  22. KETAMINE HYDROCHLORIDE [Suspect]
     Active Substance: KETAMINE HYDROCHLORIDE
     Dosage: 37.5 MG, DAILY
     Route: 065
     Dates: start: 20250617, end: 20250617
  23. KETAMINE HYDROCHLORIDE [Suspect]
     Active Substance: KETAMINE HYDROCHLORIDE
     Dosage: 50 MG, DAILY
     Route: 065
     Dates: start: 20250619, end: 20250619
  24. KETAMINE HYDROCHLORIDE [Suspect]
     Active Substance: KETAMINE HYDROCHLORIDE
     Dosage: 50 MG, DAILY
     Route: 065
     Dates: start: 20250624, end: 20250624
  25. KETAMINE HYDROCHLORIDE [Suspect]
     Active Substance: KETAMINE HYDROCHLORIDE
     Dosage: 50 MG, DAILY
     Route: 065
     Dates: start: 20250626, end: 20250626
  26. KETAMINE HYDROCHLORIDE [Suspect]
     Active Substance: KETAMINE HYDROCHLORIDE
     Dosage: 50 MG, DAILY
     Route: 065
     Dates: start: 20250707, end: 20250707
  27. KETAMINE HYDROCHLORIDE [Suspect]
     Active Substance: KETAMINE HYDROCHLORIDE
     Dosage: 50 MG, DAILY
     Route: 065
     Dates: start: 20250714, end: 20250714
  28. KETAMINE HYDROCHLORIDE [Suspect]
     Active Substance: KETAMINE HYDROCHLORIDE
     Dosage: 50 MG, DAILY
     Route: 065
     Dates: start: 20250721, end: 20250721
  29. KETAMINE HYDROCHLORIDE [Suspect]
     Active Substance: KETAMINE HYDROCHLORIDE
     Dosage: 50 MG, DAILY
     Route: 065
     Dates: start: 20250728, end: 20250728
  30. KETAMINE HYDROCHLORIDE [Suspect]
     Active Substance: KETAMINE HYDROCHLORIDE
     Dosage: 37.5 MG, DAILY
     Route: 065
     Dates: start: 20250731, end: 20250731
  31. KETOTIFEN [Suspect]
     Active Substance: KETOTIFEN
     Dosage: 2 MG, DAILY
     Route: 065
     Dates: start: 20250507, end: 20250715
  32. MIRTAZAPINE [Suspect]
     Active Substance: MIRTAZAPINE
     Dosage: 45 MG, DAILY
     Route: 065
     Dates: start: 20250507, end: 20250810
  33. MIRTAZAPINE [Suspect]
     Active Substance: MIRTAZAPINE
     Dosage: 30 MG, DAILY
     Route: 065
     Dates: start: 20250811, end: 20250905
  34. VENLAFAXINE HYDROCHLORIDE [Suspect]
     Active Substance: VENLAFAXINE HYDROCHLORIDE
     Dosage: 150 MG, DAILY
     Route: 065
     Dates: start: 20250515, end: 20250729
  35. VENLAFAXINE HYDROCHLORIDE [Suspect]
     Active Substance: VENLAFAXINE HYDROCHLORIDE
     Dosage: 75 MG, DAILY
     Route: 065
     Dates: start: 20250508, end: 20250514
  36. VENLAFAXINE HYDROCHLORIDE [Suspect]
     Active Substance: VENLAFAXINE HYDROCHLORIDE
     Dosage: 187.5 MG, DAILY
     Route: 065
     Dates: start: 20250730, end: 20250814
  37. VENLAFAXINE HYDROCHLORIDE [Suspect]
     Active Substance: VENLAFAXINE HYDROCHLORIDE
     Dosage: 150 MG, DAILY
     Route: 065
     Dates: start: 20250815, end: 20250905
  38. PREGABALIN [Suspect]
     Active Substance: PREGABALIN
     Dosage: 250 MG, DAILY
     Route: 065
     Dates: start: 20250515, end: 20250519
  39. PREGABALIN [Suspect]
     Active Substance: PREGABALIN
     Dosage: 25 MG, DAILY
     Route: 065
     Dates: start: 20250507, end: 20250507
  40. PREGABALIN [Suspect]
     Active Substance: PREGABALIN
     Dosage: 75 MG, DAILY
     Route: 065
     Dates: start: 20250508, end: 20250508
  41. PREGABALIN [Suspect]
     Active Substance: PREGABALIN
     Dosage: 125 MG, DAILY
     Route: 065
     Dates: start: 20250509, end: 20250509
  42. PREGABALIN [Suspect]
     Active Substance: PREGABALIN
     Dosage: 150 MG, DAILY
     Route: 065
     Dates: start: 20250510, end: 20250512
  43. PREGABALIN [Suspect]
     Active Substance: PREGABALIN
     Dosage: 200 MG, DAILY
     Route: 065
     Dates: start: 20250513, end: 20250513
  44. PREGABALIN [Suspect]
     Active Substance: PREGABALIN
     Dosage: 225 MG, DAILY
     Route: 065
     Dates: start: 20250514, end: 20250514
  45. PREGABALIN [Suspect]
     Active Substance: PREGABALIN
     Dosage: 250 MG, DAILY
     Dates: start: 20250515, end: 20250519
  46. PREGABALIN [Suspect]
     Active Substance: PREGABALIN
     Dosage: 300 MG, DAILY
     Route: 065
     Dates: start: 20250520, end: 20250520
  47. PREGABALIN [Suspect]
     Active Substance: PREGABALIN
     Dosage: 325 MG, DAILY
     Route: 065
     Dates: start: 20250521, end: 20250521
  48. PREGABALIN [Suspect]
     Active Substance: PREGABALIN
     Dosage: 350 MG, DAILY
     Route: 065
     Dates: start: 20250522, end: 20250527
  49. PREGABALIN [Suspect]
     Active Substance: PREGABALIN
     Dosage: 400 MG, DAILY
     Route: 065
     Dates: start: 20250528, end: 20250601
  50. PREGABALIN [Suspect]
     Active Substance: PREGABALIN
     Dosage: 450 MG, DAILY
     Route: 065
     Dates: start: 20250602, end: 20250602
  51. PREGABALIN [Suspect]
     Active Substance: PREGABALIN
     Dosage: 500 MG, DAILY
     Route: 065
     Dates: start: 20250603, end: 20250604
  52. PREGABALIN [Suspect]
     Active Substance: PREGABALIN
     Dosage: 600 MG, DAILY
     Route: 065
     Dates: start: 20250605, end: 20250804
  53. PREGABALIN [Suspect]
     Active Substance: PREGABALIN
     Dosage: 525 MG, DAILY
     Route: 065
     Dates: start: 20250805, end: 20250807
  54. PREGABALIN [Suspect]
     Active Substance: PREGABALIN
     Dosage: 450 MG, DAILY
     Route: 065
     Dates: start: 20250808, end: 20250812
  55. PREGABALIN [Suspect]
     Active Substance: PREGABALIN
     Dosage: 375 MG, DAILY
     Route: 065
     Dates: start: 20250813, end: 20250828
  56. PREGABALIN [Suspect]
     Active Substance: PREGABALIN
     Dosage: 300 MG, DAILY
     Route: 065
     Dates: start: 20250829, end: 20250905
  57. LEVOCETIRIZINE DIHYDROCHLORIDE [Suspect]
     Active Substance: LEVOCETIRIZINE DIHYDROCHLORIDE
     Dosage: 10 MG, DAILY
     Route: 065
     Dates: start: 20250507, end: 20250905
  58. ASPIRIN [Concomitant]
     Active Substance: ASPIRIN
     Dosage: 100 MG, DAILY
     Route: 065
     Dates: start: 20250507, end: 20250905
  59. ESKETAMINE [ESKETAMINE HYDROCHLORIDE] [Concomitant]
     Dosage: 50 MG, WEEKLY
     Route: 042
  60. ENOXAPARIN SODIUM [Concomitant]
     Active Substance: ENOXAPARIN SODIUM
     Dosage: 40 MG, DAILY
     Route: 065
     Dates: start: 20250513, end: 20250609
  61. LAVENDER OIL [Concomitant]
     Active Substance: LAVENDER OIL
     Dosage: 160 MG, DAILY
     Route: 065
     Dates: start: 20250507, end: 20250905
  62. NALTREXONE [Concomitant]
     Active Substance: NALTREXONE
     Dosage: 3 MG, DAILY
     Route: 065
     Dates: start: 20250507, end: 20250613
  63. DIOSMIN [Concomitant]
     Active Substance: DIOSMIN
     Dosage: 1 G, DAILY
     Route: 065
     Dates: start: 20250507, end: 20250905
  64. DESLORATADINE [Concomitant]
     Active Substance: DESLORATADINE
     Dosage: 10 MG

REACTIONS (5)
  - Urinary retention [Recovering/Resolving]
  - Weight increased [Not Recovered/Not Resolved]
  - Urinary hesitation [Recovering/Resolving]
  - Constipation [Recovering/Resolving]
  - Functional gastrointestinal disorder [Recovering/Resolving]

NARRATIVE: CASE EVENT DATE: 20250516
